FAERS Safety Report 15538299 (Version 2)
Quarter: 2021Q2

REPORT INFORMATION
  Report Type: Report from Study
  Country: US (occurrence: US)
  Receive Date: 20181022
  Receipt Date: 20210525
  Transmission Date: 20210716
  Serious: No
  Sender: FDA-Public Use
  Company Number: US-SHIRE-US201840348

PATIENT
  Sex: Female

DRUGS (4)
  1. TEDUGLUTIDE [Suspect]
     Active Substance: TEDUGLUTIDE
     Indication: PRODUCT USED FOR UNKNOWN INDICATION
     Dosage: 0.2477 (UNIT UNSPECIFIED)
     Route: 058
     Dates: start: 20180827
  2. TEDUGLUTIDE [Suspect]
     Active Substance: TEDUGLUTIDE
     Indication: PRODUCT USED FOR UNKNOWN INDICATION
     Dosage: 0.2477 (UNIT UNSPECIFIED)
     Route: 058
     Dates: start: 20180827
  3. TEDUGLUTIDE [Suspect]
     Active Substance: TEDUGLUTIDE
     Indication: PRODUCT USED FOR UNKNOWN INDICATION
     Dosage: 0.2477 (UNIT UNSPECIFIED)
     Route: 058
     Dates: start: 20180827
  4. TEDUGLUTIDE [Suspect]
     Active Substance: TEDUGLUTIDE
     Indication: PRODUCT USED FOR UNKNOWN INDICATION
     Dosage: 0.2477 (UNIT UNSPECIFIED)
     Route: 058
     Dates: start: 20180827

REACTIONS (3)
  - Hiatus hernia [Recovering/Resolving]
  - Abnormal faeces [Recovering/Resolving]
  - Product dose omission issue [Recovered/Resolved]
